FAERS Safety Report 22293497 (Version 2)
Quarter: 2023Q2

REPORT INFORMATION
  Report Type: Other
  Country: US (occurrence: None)
  Receive Date: 20230508
  Receipt Date: 20230511
  Transmission Date: 20230722
  Serious: Yes (Hospitalization, Other)
  Sender: FDA-Public Use
  Company Number: US-ROCHE-3344260

PATIENT
  Age: 53 Year
  Sex: Female

DRUGS (1)
  1. OCREVUS [Suspect]
     Active Substance: OCRELIZUMAB
     Indication: Primary progressive multiple sclerosis
     Route: 042

REACTIONS (2)
  - Wound infection [Unknown]
  - Staphylococcal infection [Unknown]
